FAERS Safety Report 25325051 (Version 1)
Quarter: 2025Q2

REPORT INFORMATION
  Report Type: Spontaneous
  Country: US (occurrence: None)
  Receive Date: 20250516
  Receipt Date: 20250516
  Transmission Date: 20250716
  Serious: Yes (Death)
  Sender: FDA-CTU
  Company Number: None

PATIENT
  Sex: Female

DRUGS (11)
  1. STELARA [Suspect]
     Active Substance: USTEKINUMAB
     Indication: Psoriasis
     Dates: start: 20230301
  2. ASPIRIN LOW TAB [Concomitant]
  3. ATORVASTATIN [Concomitant]
     Active Substance: ATORVASTATIN
  4. B12 TAB [Concomitant]
  5. ELDERBERRY CHWIMMUNE [Concomitant]
  6. LEVOTHYROXIN TAB [Concomitant]
  7. MIDODRINE TAB [Concomitant]
  8. RYTARY CAP [Concomitant]
  9. SPIRIVA [Concomitant]
     Active Substance: TIOTROPIUM BROMIDE MONOHYDRATE
  10. SPI RONOLACT TAB [Concomitant]
  11. STELARA [Concomitant]
     Active Substance: USTEKINUMAB

REACTIONS (1)
  - Death [None]
